FAERS Safety Report 20856032 (Version 1)
Quarter: 2022Q2

REPORT INFORMATION
  Report Type: Spontaneous
  Country: US (occurrence: US)
  Receive Date: 20220520
  Receipt Date: 20220520
  Transmission Date: 20220721
  Serious: No
  Sender: FDA-Public Use
  Company Number: US-BRISTOL-MYERS SQUIBB COMPANY-2022-043719

PATIENT
  Age: 61 Year
  Sex: Female
  Weight: 80.7 kg

DRUGS (1)
  1. REVLIMID [Suspect]
     Active Substance: LENALIDOMIDE
     Indication: Plasma cell myeloma
     Dosage: 5MG TAB, 21 DAYS ON/7DAYS OFF.
     Route: 048

REACTIONS (1)
  - Sinusitis [Unknown]
